FAERS Safety Report 26140236 (Version 1)
Quarter: 2025Q4

REPORT INFORMATION
  Report Type: Spontaneous
  Country: US (occurrence: None)
  Receive Date: 20251209
  Receipt Date: 20251209
  Transmission Date: 20260117
  Serious: Yes (unspecified)
  Sender: FDA-CTU
  Company Number: None

PATIENT
  Age: 59 Year
  Sex: Female
  Weight: 114.3 kg

DRUGS (6)
  1. CEFDINIR [Suspect]
     Active Substance: CEFDINIR
     Indication: Acute sinusitis
     Dates: start: 20251208, end: 20251208
  2. AUGMENTIN [Suspect]
     Active Substance: AMOXICILLIN\CLAVULANATE POTASSIUM
  3. PREDNISONE [Concomitant]
     Active Substance: PREDNISONE
  4. UNSPECIFIED INGREDIENT [Concomitant]
     Active Substance: UNSPECIFIED INGREDIENT
  5. UNSPECIFIED INGREDIENT [Concomitant]
     Active Substance: UNSPECIFIED INGREDIENT
  6. BENADRYL [Concomitant]
     Active Substance: DIPHENHYDRAMINE HYDROCHLORIDE

REACTIONS (8)
  - Rash [None]
  - Rash morbilliform [None]
  - Rash pruritic [None]
  - Burning sensation [None]
  - Oedema peripheral [None]
  - Hypertension [None]
  - Pyrexia [None]
  - Peripheral swelling [None]

NARRATIVE: CASE EVENT DATE: 20251208
